FAERS Safety Report 8791315 (Version 2)
Quarter: 2012Q4

REPORT INFORMATION
  Report Type: 
  Country: US (occurrence: None)
  Receive Date: 20120904
  Receipt Date: 20120927
  Transmission Date: 20130627
  Serious: Yes (Other)
  Sender: FDA-Public Use
  Company Number: 2012PROUSA01896

PATIENT
  Age: 83 Year
  Sex: Male
  Weight: 83.9 kg

DRUGS (3)
  1. PROVENGE (SIPULEUCEL-T) SUSPENSION, 250ML [Suspect]
     Indication: PROSTATE CANCER METASTATIC
     Route: 042
     Dates: start: 20120604, end: 20120604
  2. MEGACE (MEGESTROL ACETATE) [Concomitant]
  3. TRAMADOL (TRAMADOL HYDROCHLORIDE) [Concomitant]

REACTIONS (2)
  - Deep vein thrombosis [None]
  - Oedema peripheral [None]
